FAERS Safety Report 5601307-2 (Version None)
Quarter: 2008Q1

REPORT INFORMATION
  Report Type: 
  Country: None (occurrence: None)
  Receive Date: 20080124
  Receipt Date: 20080114
  Transmission Date: 20080703
  Serious: Yes (Death, Life-Threatening, Hospitalization)
  Sender: FDA-Public Use
  Company Number: B0504125A

PATIENT
  Age: 74 Year
  Sex: Female

DRUGS (6)
  1. ZINNAT INJECTABLE [Suspect]
     Indication: DRUG USE FOR UNKNOWN INDICATION
     Dosage: 1G PER DAY
     Route: 042
     Dates: start: 20070830, end: 20070830
  2. NIMBEX [Concomitant]
     Dosage: 20MG PER DAY
     Route: 042
     Dates: start: 20070830, end: 20070830
  3. TRASYLOL [Concomitant]
     Route: 042
     Dates: start: 20070830, end: 20070830
  4. SUFENTA [Concomitant]
     Dosage: 30G PER DAY
     Route: 042
     Dates: start: 20070830, end: 20070830
  5. KETAMINE HCL [Concomitant]
     Dosage: 35MG PER DAY
     Route: 042
     Dates: start: 20070830, end: 20070830
  6. DIPRIVAN [Concomitant]
     Dosage: 100MG PER DAY
     Route: 042
     Dates: start: 20070830, end: 20070830

REACTIONS (7)
  - ANAPHYLACTIC SHOCK [None]
  - ARRHYTHMIA SUPRAVENTRICULAR [None]
  - BLOOD PRESSURE DECREASED [None]
  - CIRCULATORY COLLAPSE [None]
  - HAEMODYNAMIC INSTABILITY [None]
  - VENTRICULAR ARRHYTHMIA [None]
  - VENTRICULAR FIBRILLATION [None]
